FAERS Safety Report 19630652 (Version 2)
Quarter: 2021Q3

REPORT INFORMATION
  Report Type: Spontaneous
  Country: JP (occurrence: JP)
  Receive Date: 20210729
  Receipt Date: 20210820
  Transmission Date: 20211014
  Serious: Yes (Death, Other)
  Sender: FDA-Public Use
  Company Number: JP-GILEAD-2021-0541968

PATIENT
  Age: 44 Year
  Sex: Male
  Weight: 54 kg

DRUGS (3)
  1. LENDORMIN [Concomitant]
     Active Substance: BROTIZOLAM
     Indication: INSOMNIA
     Dosage: 1 DOSAGE FORM, QD
     Route: 048
  2. HARVONI [Suspect]
     Active Substance: LEDIPASVIR\SOFOSBUVIR
     Indication: CHRONIC HEPATITIS C
     Dosage: 1 DOSAGE FORM, QD
     Route: 048
     Dates: start: 20210610
  3. CAMSHIA [Concomitant]
     Active Substance: AMLODIPINE BESYLATE\CANDESARTAN CILEXETIL
     Indication: HYPERTENSION
     Dosage: 1 DOSAGE FORM, QD
     Route: 048

REACTIONS (1)
  - Death [Fatal]

NARRATIVE: CASE EVENT DATE: 20210721
